FAERS Safety Report 5622493-4 (Version None)
Quarter: 2008Q1

REPORT INFORMATION
  Report Type: 
  Country: None (occurrence: None)
  Receive Date: 20080114
  Receipt Date: 20070828
  Transmission Date: 20080703
  Serious: Yes (Other)
  Sender: FDA-Public Use
  Company Number: A03200705359

PATIENT
  Age: 59 Year
  Sex: Female
  Weight: 141.0687 kg

DRUGS (14)
  1. PLAVIX [Suspect]
     Indication: CORONARY ARTERIAL STENT INSERTION
     Dosage: 75 MG QD - ORAL
     Route: 048
     Dates: start: 20070802
  2. PLAVIX [Suspect]
     Indication: CORONARY ARTERY DISEASE
     Dosage: 75 MG QD - ORAL
     Route: 048
     Dates: start: 20070802
  3. LOVENOX [Suspect]
     Indication: OBESITY
     Dosage: 140 MG Q12HR - SUBCUTANEOUS
     Route: 058
     Dates: start: 20070804, end: 20070807
  4. ANGIOMAX [Suspect]
     Indication: MYOCARDIAL INFARCTION
     Dosage: 0.1 MG / KG IV BOLUS - INTRAVENOUS BOLUS
     Route: 040
     Dates: start: 20070802, end: 20070802
  5. ACETYLSALICYLIC ACID SRT [Concomitant]
  6. ATORVASTATIN CALCIUM [Concomitant]
  7. BUDESONIDE [Concomitant]
  8. FEXOFENADINE HYDROCHLORIDE [Concomitant]
  9. IPRATROPIUM BROMIDE [Concomitant]
  10. LEVOFLOXACIN [Concomitant]
  11. MONTELUKAST SODIUM [Concomitant]
  12. PEROCOCET [Concomitant]
  13. ATENOLOL [Concomitant]
  14. LEVOTHYROXINE SODIUM [Concomitant]

REACTIONS (3)
  - HAEMOGLOBIN DECREASED [None]
  - INTERNATIONAL NORMALISED RATIO INCREASED [None]
  - INTRA-ABDOMINAL HAEMORRHAGE [None]
